FAERS Safety Report 6241469-X (Version None)
Quarter: 2009Q2

REPORT INFORMATION
  Report Type: 
  Country: None (occurrence: None)
  Receive Date: 20090623
  Receipt Date: 20030910
  Transmission Date: 20091009
  Serious: Yes (Hospitalization)
  Sender: FDA-Public Use
  Company Number: DE-ROCHE-345834

PATIENT
  Sex: Male
  Weight: 93 kg

DRUGS (33)
  1. MYCOPHENOLATE MOFETIL [Suspect]
     Route: 048
     Dates: start: 20030820, end: 20030820
  2. DACLIZUMAB [Suspect]
     Route: 042
     Dates: start: 20030819, end: 20030819
  3. MYCOPHENOLATE MOFETIL [Suspect]
     Route: 048
     Dates: start: 20030821
  4. CYCLOSPORINE [Suspect]
     Route: 048
     Dates: start: 20030101, end: 20031211
  5. CYCLOSPORINE [Suspect]
     Route: 048
     Dates: start: 20040124
  6. CYCLOSPORINE [Suspect]
     Dosage: ROUTE: ORAL
     Route: 050
     Dates: start: 20031212
  7. CYCLOSPORINE [Suspect]
     Dosage: ROUTE: INTRAVENOUS
     Route: 050
     Dates: start: 20040104, end: 20040111
  8. CYCLOSPORINE [Suspect]
     Route: 050
     Dates: start: 20040112, end: 20040123
  9. SIROLIMUS [Suspect]
     Route: 048
     Dates: start: 20030819, end: 20030821
  10. SIROLIMUS [Suspect]
     Route: 048
     Dates: start: 20030822, end: 20030826
  11. URBASON [Suspect]
     Route: 042
     Dates: start: 20030111
  12. URBASON [Suspect]
     Route: 042
     Dates: start: 20030819, end: 20030821
  13. URBASON [Suspect]
     Route: 042
     Dates: start: 20030902, end: 20030907
  14. URBASON [Suspect]
     Route: 042
     Dates: start: 20031207
  15. URBASON [Suspect]
     Dosage: ROUTE REPORTED: ORAL
     Route: 042
     Dates: start: 20031215
  16. URBASON [Suspect]
     Route: 042
     Dates: start: 20031223, end: 20031229
  17. URBASON [Suspect]
     Route: 042
     Dates: start: 20040119, end: 20040121
  18. URBASON [Suspect]
     Route: 042
     Dates: start: 20040123, end: 20040123
  19. URBASON [Suspect]
     Route: 048
     Dates: start: 20030101
  20. URBASON [Suspect]
     Route: 048
     Dates: start: 20030822
  21. URBASON [Suspect]
     Route: 048
     Dates: start: 20030902, end: 20030902
  22. URBASON [Suspect]
     Route: 048
     Dates: start: 20030908
  23. URBASON [Suspect]
     Route: 048
     Dates: start: 20030917, end: 20031206
  24. URBASON [Suspect]
     Route: 048
     Dates: start: 20031230, end: 20040118
  25. URBASON [Suspect]
     Route: 048
     Dates: start: 20040122, end: 20040122
  26. URBASON [Suspect]
     Route: 048
     Dates: start: 20040123
  27. LIQUAEMIN INJ [Suspect]
     Indication: DRUG USE FOR UNKNOWN INDICATION
     Route: 042
     Dates: start: 20030813, end: 20030825
  28. SANDOCAL 400 [Concomitant]
     Route: 048
  29. BIDOCEF [Concomitant]
     Route: 042
  30. BASOCEF [Concomitant]
     Route: 042
     Dates: start: 20030819, end: 20030828
  31. BASOCEF [Concomitant]
     Route: 042
     Dates: start: 20030910, end: 20030913
  32. PHYTOMENADION [Concomitant]
     Route: 042
     Dates: start: 20030821
  33. VANCOMYCIN [Concomitant]
     Route: 042
     Dates: start: 20030819, end: 20030820

REACTIONS (2)
  - IMPAIRED HEALING [None]
  - POST PROCEDURAL HAEMORRHAGE [None]
